FAERS Safety Report 18431784 (Version 4)
Quarter: 2020Q4

REPORT INFORMATION
  Report Type: Spontaneous
  Country: US (occurrence: US)
  Receive Date: 20201027
  Receipt Date: 20201211
  Transmission Date: 20210114
  Serious: Yes (Other)
  Sender: FDA-Public Use
  Company Number: US-009507513-2010USA008207

PATIENT
  Age: 19 Year
  Sex: Female
  Weight: 110.3 kg

DRUGS (3)
  1. NEXPLANON [Suspect]
     Active Substance: ETONOGESTREL
     Indication: CONTRACEPTION
     Dosage: 1 IMPLANT (1 DOSAGE FORM, 68 MG) IN LEFT UPPER ARM
     Route: 059
     Dates: start: 20190905
  2. NEXPLANON [Suspect]
     Active Substance: ETONOGESTREL
     Indication: CONTRACEPTION
     Dosage: 1 IMPLANT (1 DOSAGE FORM, 68 MG), IN HER LEFT ARM
     Route: 059
     Dates: start: 20190731, end: 20190905
  3. VITAMIN D (UNSPECIFIED) [Concomitant]
     Active Substance: VITAMIN D NOS
     Dosage: UNK

REACTIONS (8)
  - Device dislocation [Recovered/Resolved]
  - Limb injury [Unknown]
  - Device breakage [Recovered/Resolved]
  - Vaginal haemorrhage [Unknown]
  - Erythema [Recovered/Resolved]
  - Stress [Unknown]
  - Pain in extremity [Unknown]
  - Implant site bruising [Unknown]

NARRATIVE: CASE EVENT DATE: 2019
